FAERS Safety Report 7534133-8 (Version None)
Quarter: 2011Q2

REPORT INFORMATION
  Report Type: 
  Country: None (occurrence: None)
  Receive Date: 20110608
  Receipt Date: 20061030
  Transmission Date: 20111010
  Serious: Yes (Other)
  Sender: FDA-Public Use
  Company Number: PHHO2006DK18313

PATIENT

DRUGS (4)
  1. DIOVAN [Suspect]
     Dosage: 80 MG, QD
     Route: 048
  2. PERINDOPRIL ERBUMINE [Concomitant]
     Dosage: UNKNOWN
  3. DIURETICS [Concomitant]
     Dosage: UNKNOWN
  4. CALCIUM CHANNEL BLOCKERS [Concomitant]

REACTIONS (1)
  - DEPRESSION [None]
